FAERS Safety Report 6855275-6 (Version None)
Quarter: 2010Q3

REPORT INFORMATION
  Report Type: 
  Country: None (occurrence: None)
  Receive Date: 20100719
  Receipt Date: 20100709
  Transmission Date: 20110219
  Serious: No
  Sender: FDA-Public Use
  Company Number: US-BIOGENIDEC-2010BI009789

PATIENT
  Sex: Male

DRUGS (2)
  1. TYSABRI [Suspect]
     Indication: MULTIPLE SCLEROSIS
     Route: 042
     Dates: start: 20050131, end: 20050131
  2. TYSABRI [Suspect]
     Route: 042
     Dates: start: 20090713, end: 20100203

REACTIONS (3)
  - BLOOD TEST ABNORMAL [None]
  - DRUG SPECIFIC ANTIBODY PRESENT [None]
  - MALAISE [None]
